FAERS Safety Report 15311793 (Version 3)
Quarter: 2019Q1

REPORT INFORMATION
  Report Type: Report from Study
  Country: US (occurrence: US)
  Receive Date: 20180823
  Receipt Date: 20190107
  Transmission Date: 20190417
  Serious: Yes (Hospitalization)
  Sender: FDA-Public Use
  Company Number: PHEH2018US034729

PATIENT
  Sex: Female
  Weight: 142.86 kg

DRUGS (1)
  1. COSENTYX [Suspect]
     Active Substance: SECUKINUMAB
     Indication: PSORIATIC ARTHROPATHY
     Dosage: 300 MG, QMO
     Route: 058
     Dates: start: 201705

REACTIONS (4)
  - Asthma [Unknown]
  - Pneumonitis [Unknown]
  - Hypoaesthesia [Unknown]
  - Paraesthesia [Unknown]
